FAERS Safety Report 6923069-9 (Version None)
Quarter: 2010Q3

REPORT INFORMATION
  Report Type: 
  Country: None (occurrence: None)
  Receive Date: 20100811
  Receipt Date: 20100708
  Transmission Date: 20110219
  Serious: Yes (Hospitalization)
  Sender: FDA-Public Use
  Company Number: 016766

PATIENT
  Age: 38 Year
  Sex: Female

DRUGS (4)
  1. KEPPRA [Suspect]
     Indication: PETIT MAL EPILEPSY
     Dosage: (750 MG ORAL)
     Route: 048
     Dates: start: 20080101
  2. DIVALPROEX SODIUM [Concomitant]
  3. ESTROGENS ESTERIFIED W/METHYLTESTOSTERONE [Concomitant]
  4. OMEPRAZOLE [Concomitant]

REACTIONS (2)
  - HOT FLUSH [None]
  - MIGRAINE [None]
